FAERS Safety Report 24228703 (Version 2)
Quarter: 2024Q3

REPORT INFORMATION
  Report Type: Spontaneous
  Country: US (occurrence: US)
  Receive Date: 20240820
  Receipt Date: 20240828
  Transmission Date: 20241017
  Serious: No
  Sender: PFIZER
  Company Number: US-PFIZER INC-202400239788

PATIENT
  Age: 65 Year

DRUGS (2)
  1. IBRANCE [Suspect]
     Active Substance: PALBOCICLIB
     Dosage: 125 MG, DAILY FOR 21 DAYS WITH FOOD. DO NOT CRUSH, CHEW. OFF FOR 7 DAYS.
  2. IBRANCE [Suspect]
     Active Substance: PALBOCICLIB
     Dosage: 100 MG, CYCLIC, 100 MG, Q. DAY FOR 21 DAYS. THEN OFF FOR 7 DAYS OF A 28 DAY CYCLE. THEN REPEAT CYCLE
     Route: 048

REACTIONS (1)
  - Diarrhoea [Unknown]
